FAERS Safety Report 6796339-5 (Version None)
Quarter: 2010Q2

REPORT INFORMATION
  Report Type: 
  Country: None (occurrence: None)
  Receive Date: 20100622
  Receipt Date: 20100608
  Transmission Date: 20101027
  Serious: Yes (Other)
  Sender: FDA-Public Use
  Company Number: ES-002196

PATIENT
  Age: 6 Year
  Sex: Female

DRUGS (1)
  1. DESMOPRESSIN ACETATE [Suspect]
     Indication: ENURESIS
     Dosage: SUBLINGUAL
     Route: 060
     Dates: start: 20100205, end: 20100211

REACTIONS (1)
  - RASH [None]
